FAERS Safety Report 8901052 (Version 4)
Quarter: 2013Q3

REPORT INFORMATION
  Report Type: Report from Study
  Country: BR (occurrence: BR)
  Receive Date: 20121109
  Receipt Date: 20130904
  Transmission Date: 20140515
  Serious: Yes (Other)
  Sender: FDA-Public Use
  Company Number: PHHY2012BR098088

PATIENT
  Sex: Female
  Weight: 75 kg

DRUGS (3)
  1. DIOVAN HCT [Suspect]
     Indication: HYPERTENSION
     Dosage: 1 DF, (320/12.5 MG) QD
     Route: 048
  2. AMITRIPTYLINE [Concomitant]
     Indication: DEPRESSION
     Dosage: 1 DF ONCE A NIGHT
     Route: 048
  3. AAS [Concomitant]
     Indication: BLOOD DISORDER
     Dosage: 1 DF ONCE AFTER LUNCH
     Route: 048

REACTIONS (2)
  - Heart rate decreased [Recovered/Resolved]
  - Blood pressure inadequately controlled [Not Recovered/Not Resolved]
